FAERS Safety Report 5640151-7 (Version None)
Quarter: 2008Q1

REPORT INFORMATION
  Report Type: 
  Country: None (occurrence: None)
  Receive Date: 20080226
  Receipt Date: 20080226
  Transmission Date: 20080703
  Serious: Yes (Other)
  Sender: FDA-Public Use
  Company Number: None

PATIENT
  Sex: Female

DRUGS (1)
  1. HUMATROPE [Suspect]
     Dosage: 0.2MG QD SQ
     Route: 058
     Dates: start: 20080220, end: 20080222

REACTIONS (8)
  - CHEST DISCOMFORT [None]
  - CHILLS [None]
  - DIARRHOEA [None]
  - FLUSHING [None]
  - NAUSEA [None]
  - RASH [None]
  - THROAT TIGHTNESS [None]
  - VOMITING [None]
